FAERS Safety Report 21418218 (Version 2)
Quarter: 2022Q4

REPORT INFORMATION
  Report Type: Spontaneous
  Country: US (occurrence: US)
  Receive Date: 20221006
  Receipt Date: 20221012
  Transmission Date: 20230113
  Serious: No
  Sender: FDA-Public Use
  Company Number: US-JNJFOC-20220957813

PATIENT
  Age: 34 Year
  Sex: Female
  Weight: 56.750 kg

DRUGS (2)
  1. SIMPONI [Suspect]
     Active Substance: GOLIMUMAB
     Indication: Inflammatory bowel disease
     Dosage: 100.00 MG/ML
     Route: 058
     Dates: start: 20220816
  2. PRENATAL MULTIVITAMIN + DHA [Concomitant]

REACTIONS (5)
  - Product dose omission issue [Unknown]
  - Needle issue [Unknown]
  - Drug delivery system malfunction [Unknown]
  - Accidental exposure to product [Unknown]
  - Off label use [Unknown]

NARRATIVE: CASE EVENT DATE: 20220928
